FAERS Safety Report 16150871 (Version 1)
Quarter: 2019Q2

REPORT INFORMATION
  Report Type: Spontaneous
  Country: US (occurrence: US)
  Receive Date: 20190402
  Receipt Date: 20190402
  Transmission Date: 20190711
  Serious: Yes (Death, Life-Threatening, Hospitalization)
  Sender: FDA-Public Use
  Company Number: None

PATIENT
  Age: 65 Year
  Sex: Male
  Weight: 112.5 kg

DRUGS (8)
  1. LIPITOR [Concomitant]
     Active Substance: ATORVASTATIN CALCIUM
  2. ADVIL [Concomitant]
     Active Substance: IBUPROFEN
  3. VITAMIN [Concomitant]
     Active Substance: VITAMINS
  4. TAMSULOSIN [Concomitant]
     Active Substance: TAMSULOSIN
  5. YERVOY [Suspect]
     Active Substance: IPILIMUMAB
  6. OPDIVO [Suspect]
     Active Substance: NIVOLUMAB
     Indication: RENAL CANCER METASTATIC
     Dosage: ?          OTHER FREQUENCY:EVERY THREE WEEKS;?
     Route: 042
     Dates: start: 20190222, end: 20190315
  7. PROZAC [Concomitant]
     Active Substance: FLUOXETINE HYDROCHLORIDE
  8. METFORMIN [Concomitant]
     Active Substance: METFORMIN HYDROCHLORIDE

REACTIONS (2)
  - Atrial fibrillation [None]
  - Myasthenia gravis [None]

NARRATIVE: CASE EVENT DATE: 20190225
